FAERS Safety Report 14928932 (Version 1)
Quarter: 2018Q2

REPORT INFORMATION
  Report Type: Spontaneous
  Country: GB (occurrence: GB)
  Receive Date: 20180523
  Receipt Date: 20180523
  Transmission Date: 20180711
  Serious: Yes (Other)
  Sender: FDA-Public Use
  Company Number: GB-MYLANLABS-2018M1033348

PATIENT
  Sex: Male

DRUGS (1)
  1. DESMOPRESSIN [Suspect]
     Active Substance: DESMOPRESSIN
     Indication: HYPERTONIC BLADDER
     Route: 065

REACTIONS (4)
  - Chorioretinopathy [Unknown]
  - Product use in unapproved indication [Unknown]
  - Off label use [Unknown]
  - Subretinal fluid [Unknown]
